FAERS Safety Report 13340067 (Version 1)
Quarter: 2017Q1

REPORT INFORMATION
  Report Type: Spontaneous
  Country: ES (occurrence: ES)
  Receive Date: 20170316
  Receipt Date: 20170316
  Transmission Date: 20170428
  Serious: No
  Sender: FDA-Public Use
  Company Number: ES-LUPIN PHARMACEUTICALS INC.-2017-00091

PATIENT
  Age: 30 Year
  Sex: Female

DRUGS (6)
  1. RIFAMPICIN [Suspect]
     Active Substance: RIFAMPIN
     Dosage: UNK UNK,UNK,UNKNOWN
     Route: 065
  2. OFLOXACIN. [Concomitant]
     Active Substance: OFLOXACIN
     Indication: LEPROSY
     Dosage: FOR 1 MONTH AND 6 MONTH THERAPY
     Route: 065
     Dates: start: 2004
  3. MINOCYCLINE [Concomitant]
     Active Substance: MINOCYCLINE\MINOCYCLINE HYDROCHLORIDE
     Indication: LEPROSY
     Dosage: 1 DF,UNK,UNKNOWN
     Route: 065
     Dates: start: 2004
  4. CLOFAZIMINE [Concomitant]
     Active Substance: CLOFAZIMINE
     Indication: LEPROSY
     Dosage: FOR 1 MONTH, 6 MONTH, 7 MONTH AND 11 MONTH THERAPY
     Route: 065
  5. RIFAMPICIN [Suspect]
     Active Substance: RIFAMPIN
     Indication: LEPROSY
     Dosage: 600 MG,AS DIRECTED,
     Route: 065
     Dates: start: 2004
  6. DAPSONE. [Concomitant]
     Active Substance: DAPSONE
     Indication: LEPROSY
     Dosage: FOR 1 MONTH, 6 MONTH AND 7 MONTH THERAPY
     Route: 065

REACTIONS (1)
  - Influenza like illness [Unknown]
